FAERS Safety Report 5485011-X (Version None)
Quarter: 2007Q4

REPORT INFORMATION
  Report Type: 
  Country: None (occurrence: None)
  Receive Date: 20071015
  Receipt Date: 20071003
  Transmission Date: 20080405
  Serious: Yes (Other)
  Sender: FDA-Public Use
  Company Number: PHBS2007BR16422

PATIENT
  Age: 55 Year
  Sex: Male
  Weight: 88 kg

DRUGS (4)
  1. TEGRETOL CR [Suspect]
     Indication: CONVULSION
     Dosage: UNK, TID
     Route: 048
     Dates: start: 19790101
  2. AMARYL [Concomitant]
     Indication: DIABETES MELLITUS
     Dosage: UNK, QD
     Route: 048
  3. METFORMIN [Concomitant]
     Indication: DIABETES MELLITUS
     Dosage: UNK, BID
     Route: 048
  4. PHENOBARBITAL TAB [Concomitant]
     Indication: CONVULSION
     Dosage: UNK, QD
     Route: 048

REACTIONS (2)
  - HEPATIC CIRRHOSIS [None]
  - HEPATITIS C [None]
